FAERS Safety Report 9373514 (Version 1)
Quarter: 2013Q2

REPORT INFORMATION
  Report Type: Spontaneous
  Country: CN (occurrence: CN)
  Receive Date: 20130627
  Receipt Date: 20130627
  Transmission Date: 20140414
  Serious: Yes (Death)
  Sender: FDA-Public Use
  Company Number: PHHY2013CN064065

PATIENT
  Age: 24 Year
  Sex: Female

DRUGS (5)
  1. CICLOSPORIN [Suspect]
     Indication: SYSTEMIC LUPUS ERYTHEMATOSUS
  2. PREDNISONE [Suspect]
     Indication: SYSTEMIC LUPUS ERYTHEMATOSUS
  3. METHYLPREDNISOLONE [Concomitant]
     Dosage: 40 MG, UNK
     Route: 042
  4. PREDNISOLONE [Concomitant]
     Dosage: 30 MG, QD
     Route: 048
  5. TACROLIMUS [Concomitant]
     Dosage: 1 MG, BID

REACTIONS (2)
  - Haemodynamic instability [Fatal]
  - Drug ineffective [Unknown]
